FAERS Safety Report 7403940-4 (Version None)
Quarter: 2011Q2

REPORT INFORMATION
  Report Type: 
  Country: None (occurrence: None)
  Receive Date: 20110408
  Receipt Date: 20110406
  Transmission Date: 20111010
  Serious: Yes (Life-Threatening)
  Sender: FDA-Public Use
  Company Number: KP-ROXANE LABORATORIES, INC.-2011-RO-00458RO

PATIENT
  Age: 61 Year
  Sex: Female

DRUGS (2)
  1. DEXAMETHASONE [Suspect]
     Route: 048
  2. DEXAMETHASONE [Suspect]
     Indication: ADRENAL NEOPLASM
     Dosage: 2 MG
     Route: 048

REACTIONS (1)
  - PHAEOCHROMOCYTOMA CRISIS [None]
